FAERS Safety Report 6295787-X (Version None)
Quarter: 2009Q3

REPORT INFORMATION
  Report Type: 
  Country: None (occurrence: None)
  Receive Date: 20090804
  Receipt Date: 20090724
  Transmission Date: 20100115
  Serious: Yes (Hospitalization, Other)
  Sender: FDA-Public Use
  Company Number: AU-PFIZER INC-2009239660

PATIENT
  Age: 70 Year

DRUGS (12)
  1. LIPITOR [Suspect]
     Indication: HYPERCHOLESTEROLAEMIA
     Dosage: 80 MG, 1X/DAY
     Route: 048
     Dates: start: 20090603, end: 20090625
  2. LIPITOR [Suspect]
     Dosage: 10 MG, 1X/DAY
     Dates: start: 20080707
  3. LIPITOR [Suspect]
     Dosage: 40 MG, 1X/DAY
     Dates: end: 20090602
  4. ACETYLSALICYLIC ACID [Concomitant]
     Dosage: 100 MG, 1X/DAY
     Route: 048
  5. BISOPROLOL [Concomitant]
     Dosage: 2.5 MG, 1X/DAY
     Route: 048
  6. CALCITRIOL [Concomitant]
     Dosage: 0.25 UG, 1X/DAY
     Route: 048
  7. AMIODARONE [Concomitant]
     Dosage: 100 MG, 1X/DAY
     Route: 048
  8. ESOMEPRAZOLE [Concomitant]
     Dosage: 40 MG, 1X/DAY
     Route: 048
  9. BUMETANIDE [Concomitant]
     Dosage: 1 MG, 1X/DAY
     Route: 048
  10. CLOPIDOGREL [Concomitant]
     Dosage: 75 MG, 1X/DAY
     Route: 048
  11. COLCHICINE [Concomitant]
     Dosage: 0.5 MG, 2X/DAY
     Route: 048
  12. NICORANDIL [Concomitant]
     Dosage: 5 MG, 2X/DAY
     Route: 048

REACTIONS (5)
  - BLOOD CREATINE PHOSPHOKINASE INCREASED [None]
  - DEHYDRATION [None]
  - LETHARGY [None]
  - MUSCULAR WEAKNESS [None]
  - MYOSITIS [None]
